FAERS Safety Report 19206357 (Version 1)
Quarter: 2021Q2

REPORT INFORMATION
  Report Type: Spontaneous
  Country: NO (occurrence: NO)
  Receive Date: 20210503
  Receipt Date: 20210503
  Transmission Date: 20210717
  Serious: Yes (Hospitalization)
  Sender: FDA-Public Use
  Company Number: NO-BAYER-2021-134092

PATIENT

DRUGS (2)
  1. XOFIGO [Suspect]
     Active Substance: RADIUM RA-223 DICHLORIDE
     Dosage: 5.06 MBQ, Q4WK
     Dates: start: 20210315, end: 20210315
  2. XOFIGO [Suspect]
     Active Substance: RADIUM RA-223 DICHLORIDE
     Dosage: 4.77 MBQ, Q4WK
     Dates: start: 20210215, end: 20210215

REACTIONS (2)
  - General physical health deterioration [None]
  - Clostridium difficile infection [None]
